FAERS Safety Report 5816287-4 (Version None)
Quarter: 2008Q3

REPORT INFORMATION
  Report Type: 
  Country: None (occurrence: None)
  Receive Date: 20080721
  Receipt Date: 20080709
  Transmission Date: 20090109
  Serious: Yes (Hospitalization)
  Sender: FDA-Public Use
  Company Number: US-BAYER-200811164NA

PATIENT
  Age: 48 Year
  Sex: Male
  Weight: 91 kg

DRUGS (1)
  1. AVELOX [Suspect]
     Indication: BRONCHITIS
     Dosage: TOTAL DAILY DOSE: 400 MG  UNIT DOSE: 400 MG
     Route: 048
     Dates: start: 20071226, end: 20080101

REACTIONS (2)
  - RHABDOMYOLYSIS [None]
  - SUDDEN HEARING LOSS [None]
